FAERS Safety Report 15310114 (Version 3)
Quarter: 2018Q3

REPORT INFORMATION
  Report Type: Spontaneous
  Country: US (occurrence: US)
  Receive Date: 20180823
  Receipt Date: 20180910
  Transmission Date: 20181010
  Serious: No
  Sender: FDA-Public Use
  Company Number: US-PFIZER INC-2018336344

PATIENT
  Sex: Female

DRUGS (1)
  1. ESTRADIOL. [Suspect]
     Active Substance: ESTRADIOL
     Dosage: UNK

REACTIONS (6)
  - Hot flush [Recovering/Resolving]
  - Dry eye [Recovering/Resolving]
  - Asthenia [Recovered/Resolved]
  - Libido decreased [Unknown]
  - Weight increased [Unknown]
  - Irritability [Recovering/Resolving]
